FAERS Safety Report 4407811-7 (Version None)
Quarter: 2004Q3

REPORT INFORMATION
  Report Type: 
  Country: None (occurrence: None)
  Receive Date: 20040721
  Receipt Date: 20040708
  Transmission Date: 20050211
  Serious: Yes (Hospitalization, Disabling, Other)
  Sender: FDA-Public Use
  Company Number: GB-JNJFOC-20040602726

PATIENT
  Sex: Male

DRUGS (1)
  1. RISPERDAL [Suspect]
     Indication: SCHIZOPHRENIA
     Dosage: 1 MG, 2 IN 1 DAY

REACTIONS (10)
  - FAECAL INCONTINENCE [None]
  - FEELING DRUNK [None]
  - HALLUCINATION [None]
  - LOSS OF CONTROL OF LEGS [None]
  - MUSCLE RIGIDITY [None]
  - RETINAL SCAR [None]
  - URINARY INCONTINENCE [None]
  - VERBAL ABUSE [None]
  - VISUAL DISTURBANCE [None]
  - WEIGHT INCREASED [None]
